FAERS Safety Report 6250724-9 (Version None)
Quarter: 2009Q2

REPORT INFORMATION
  Report Type: 
  Country: None (occurrence: None)
  Receive Date: 20090630
  Receipt Date: 20081003
  Transmission Date: 20091009
  Serious: No
  Sender: FDA-Public Use
  Company Number: US-ABBOTT-08P-163-0479722-00

PATIENT
  Sex: Female
  Weight: 117.5 kg

DRUGS (11)
  1. ZEMPLAR [Suspect]
     Indication: RENAL OSTEODYSTROPHY
     Route: 048
     Dates: start: 20080501, end: 20080820
  2. CLONIDINE [Concomitant]
     Indication: DRUG USE FOR UNKNOWN INDICATION
     Route: 048
  3. LANTHANUM CARBONATE [Concomitant]
     Indication: DRUG USE FOR UNKNOWN INDICATION
     Route: 048
  4. GLIPIZIDE [Concomitant]
     Indication: DRUG USE FOR UNKNOWN INDICATION
     Route: 048
  5. LISINOPRIL [Concomitant]
     Indication: DRUG USE FOR UNKNOWN INDICATION
     Route: 048
  6. VITAMIN TAB [Concomitant]
     Indication: DRUG USE FOR UNKNOWN INDICATION
     Route: 048
  7. NIFEDIPINE [Concomitant]
     Indication: DRUG USE FOR UNKNOWN INDICATION
     Route: 048
  8. ALPRAZOLAM [Concomitant]
     Indication: DRUG USE FOR UNKNOWN INDICATION
     Route: 048
  9. EPOETIN ALFA [Concomitant]
     Indication: DIALYSIS
  10. HECTORAL [Concomitant]
     Indication: DIALYSIS
     Dosage: 3 MG 1 Q TX 3X/WK
  11. FENOFAR IRON SUCROSE [Concomitant]
     Indication: DIALYSIS
     Dosage: 50 MG Q TX 3X/WK

REACTIONS (1)
  - RASH [None]
